FAERS Safety Report 10948332 (Version 1)
Quarter: 2015Q1

REPORT INFORMATION
  Report Type: Spontaneous
  Country: US (occurrence: None)
  Receive Date: 20150320
  Receipt Date: 20150320
  Transmission Date: 20150721
  Serious: Yes (Life-Threatening, Hospitalization, Disabling, Other)
  Sender: FDA-Public Use
  Company Number: IDR-00976

PATIENT
  Age: 52 Year
  Sex: Female
  Weight: 58.97 kg

DRUGS (4)
  1. INDERAL LA [Suspect]
     Active Substance: PROPRANOLOL HYDROCHLORIDE
     Indication: MIGRAINE
     Dosage: TWO 80 MG CAPSULES DAILY, ORAL
     Route: 048
     Dates: start: 1994
  2. PLAVIX [Suspect]
     Active Substance: CLOPIDOGREL BISULFATE
     Route: 048
  3. PREDNISONE. [Suspect]
     Active Substance: PREDNISONE
     Route: 048
  4. NITROGLYCERIN. [Concomitant]
     Active Substance: NITROGLYCERIN

REACTIONS (12)
  - Anaphylactic reaction [None]
  - Gait disturbance [None]
  - Blood pressure abnormal [None]
  - Dyspnoea [None]
  - Myocardial infarction [None]
  - Fluid retention [None]
  - Quality of life decreased [None]
  - Heart rate irregular [None]
  - Limb discomfort [None]
  - Impaired driving ability [None]
  - Chest pain [None]
  - Coronary vascular graft occlusion [None]

NARRATIVE: CASE EVENT DATE: 200705
